FAERS Safety Report 15700080 (Version 2)
Quarter: 2019Q2

REPORT INFORMATION
  Report Type: Report from Study
  Country: ES (occurrence: ES)
  Receive Date: 20181207
  Receipt Date: 20190516
  Transmission Date: 20190711
  Serious: No
  Sender: FDA-Public Use
  Company Number: ES-PFIZER INC-2018501344

PATIENT
  Sex: Female
  Weight: 42.5 kg

DRUGS (7)
  1. PACLITAXEL. [Suspect]
     Active Substance: PACLITAXEL
     Dosage: UNK
     Route: 042
     Dates: start: 20170208
  2. PACLITAXEL. [Suspect]
     Active Substance: PACLITAXEL
     Dosage: UNK
  3. BEVACIZUMAB. [Suspect]
     Active Substance: BEVACIZUMAB
     Indication: BREAST CANCER METASTATIC
     Dosage: 10 MG/KG, EVERY 2 WEEKS (FORM STRENGTH: 25 MG/ML)
     Route: 042
     Dates: start: 20160222
  4. BEVACIZUMAB. [Suspect]
     Active Substance: BEVACIZUMAB
     Dosage: UNK
     Route: 042
     Dates: start: 20161205
  5. BEVACIZUMAB. [Suspect]
     Active Substance: BEVACIZUMAB
     Dosage: UNK
     Route: 042
     Dates: start: 20170208
  6. PACLITAXEL. [Suspect]
     Active Substance: PACLITAXEL
     Indication: BREAST CANCER METASTATIC
     Dosage: 80 MG/M2, UNK
     Route: 042
     Dates: start: 20160222
  7. PACLITAXEL. [Suspect]
     Active Substance: PACLITAXEL
     Dosage: UNK
     Route: 042
     Dates: start: 20170102

REACTIONS (14)
  - Diarrhoea [Recovered/Resolved]
  - Nasopharyngitis [Recovered/Resolved]
  - Hot flush [Recovered/Resolved]
  - Hordeolum [Recovered/Resolved]
  - Alopecia [Recovering/Resolving]
  - Abdominal pain upper [Recovered/Resolved]
  - Epistaxis [Recovered/Resolved]
  - Alopecia [Recovered/Resolved]
  - Rhinorrhoea [Recovered/Resolved]
  - Hordeolum [Recovered/Resolved with Sequelae]
  - Fatigue [Recovered/Resolved]
  - Weight decreased [Recovered/Resolved]
  - Nail toxicity [Recovered/Resolved]
  - Impaired healing [Recovered/Resolved]

NARRATIVE: CASE EVENT DATE: 20160310
